FAERS Safety Report 5061670-0 (Version None)
Quarter: 2006Q3

REPORT INFORMATION
  Report Type: 
  Country: None (occurrence: None)
  Receive Date: 20060721
  Receipt Date: 20060705
  Transmission Date: 20061208
  Serious: Yes (Other)
  Sender: FDA-Public Use
  Company Number: US200603005883

PATIENT
  Age: 66 Year
  Sex: Female

DRUGS (5)
  1. HUMALOG PEN [Suspect]
     Indication: DIABETES MELLITUS INSULIN-DEPENDENT
     Dosage: 4 U, OTHER
     Dates: start: 20040101
  2. HUMALOG PEN [Suspect]
     Dosage: 4 U, OTHER
     Dates: start: 20040101
  3. HUMALOG PEN [Suspect]
     Dosage: 4 U, OTHER
     Dates: start: 20040101
  4. HUMALOG PEN [Concomitant]
  5. VITAMIN D [Concomitant]

REACTIONS (10)
  - AMNESIA [None]
  - BLOOD GLUCOSE DECREASED [None]
  - BLOOD GLUCOSE INCREASED [None]
  - DIFFUSE LARGE B-CELL LYMPHOMA [None]
  - DYSPEPSIA [None]
  - FEELING HOT [None]
  - HUNGER [None]
  - INTESTINAL FUNCTIONAL DISORDER [None]
  - MEMORY IMPAIRMENT [None]
  - PHARMACEUTICAL PRODUCT COMPLAINT [None]
